FAERS Safety Report 12472227 (Version 2)
Quarter: 2016Q4

REPORT INFORMATION
  Report Type: Report from Study
  Country: JP (occurrence: JP)
  Receive Date: 20160616
  Receipt Date: 20161101
  Transmission Date: 20170207
  Serious: Yes (Other)
  Sender: FDA-Public Use
  Company Number: JP-ROCHE-1775224

PATIENT

DRUGS (1)
  1. TOCILIZUMAB [Suspect]
     Active Substance: TOCILIZUMAB
     Indication: POLYMYALGIA RHEUMATICA
     Dosage: BIWEEKLY FOR THE FIRST 2 MONTHS (5 INFUSIONS) AND EVERY 4 WEEKS FOR SUBSEQUENT 24 WEEKS
     Route: 042

REACTIONS (1)
  - Pemphigoid [Unknown]
